FAERS Safety Report 7735013-5 (Version None)
Quarter: 2011Q3

REPORT INFORMATION
  Report Type: 
  Country: None (occurrence: None)
  Receive Date: 20110907
  Receipt Date: 20110831
  Transmission Date: 20111222
  Serious: Yes (Other)
  Sender: FDA-Public Use
  Company Number: JP-BRISTOL-MYERS SQUIBB COMPANY-16017592

PATIENT
  Age: 6 Decade
  Sex: Female

DRUGS (10)
  1. FLUNITRAZEPAM [Concomitant]
  2. TIAPRIDE HCL [Concomitant]
  3. VALPROATE SODIUM [Concomitant]
  4. LAMOTRIGINE [Concomitant]
  5. ABILIFY [Suspect]
     Indication: SCHIZOPHRENIA
     Dosage: ABILIFY ORAL SOLUTION 0.1 PERCENT DOSE INCREASED TO 24MG/D
     Route: 048
  6. DIPHENHYDRAMINE HCL [Concomitant]
  7. HIRNAMIN [Suspect]
     Dosage: 15MG,75MG,150MG DAILY DOSE
     Route: 065
  8. NITRAZEPAM [Concomitant]
  9. QUETIAPINE FUMARATE [Concomitant]
  10. ZONISAMIDE [Concomitant]

REACTIONS (3)
  - THIRST [None]
  - ABNORMAL BEHAVIOUR [None]
  - POLYDIPSIA [None]
